FAERS Safety Report 4808831-0 (Version None)
Quarter: 2005Q4

REPORT INFORMATION
  Report Type: 
  Country: None (occurrence: None)
  Receive Date: 20051021
  Receipt Date: 20020717
  Transmission Date: 20060501
  Serious: No
  Sender: FDA-Public Use
  Company Number: DE_020709181

PATIENT
  Age: 23 Year
  Sex: Male

DRUGS (1)
  1. ZYPREXA [Suspect]
     Indication: PSYCHOTIC DISORDER
     Dosage: 5 MG /DAY
     Dates: start: 19970101

REACTIONS (2)
  - LYMPHOCYTE PERCENTAGE INCREASED [None]
  - SHIFT TO THE LEFT [None]
